FAERS Safety Report 23190095 (Version 1)
Quarter: 2023Q4

REPORT INFORMATION
  Report Type: Spontaneous
  Country: IT (occurrence: IT)
  Receive Date: 20231116
  Receipt Date: 20231116
  Transmission Date: 20240110
  Serious: Yes (Other)
  Sender: FDA-Public Use
  Company Number: None

PATIENT
  Age: 69 Year
  Sex: Female
  Weight: 50 kg

DRUGS (15)
  1. CISPLATIN [Suspect]
     Active Substance: CISPLATIN
     Indication: Metastases to lung
     Dosage: 3RD CYCLE/ 8TH DAY WITH CISPLATIN TEVA* 50MG 100ML ADMINISTERED AT A DOSAGE OF 25 MG I.V. IN 60 MINU
     Route: 042
     Dates: start: 20230801, end: 20231002
  2. CISPLATIN [Suspect]
     Active Substance: CISPLATIN
     Indication: Malignant neoplasm of ampulla of Vater
  3. GEMCITABINE HYDROCHLORIDE [Suspect]
     Active Substance: GEMCITABINE HYDROCHLORIDE
     Indication: Metastases to lung
     Dosage: 3RD CYCLE/ 8TH DAY WITH GEMCITABINA HIKMA* 5FL 1G ADMINISTERED AT A DOSAGE OF 1000 MG IV. IN 30 MIN.
     Route: 042
     Dates: start: 20230801, end: 20231002
  4. GEMCITABINE HYDROCHLORIDE [Suspect]
     Active Substance: GEMCITABINE HYDROCHLORIDE
     Indication: Malignant neoplasm of ampulla of Vater
  5. IMFINZI [Concomitant]
     Active Substance: DURVALUMAB
     Indication: Malignant neoplasm of ampulla of Vater
     Dosage: IMFINZI*1FL 10ML 50MG/ML - DURVALUMAB (PA); ATC: L01FF03; DOSAGE SCHEDULE: 1500 MG IN 60 MIN IV FOR
     Route: 042
     Dates: start: 20230801, end: 20231016
  6. IMFINZI [Concomitant]
     Active Substance: DURVALUMAB
     Indication: Metastases to lung
  7. METOCLOPRAMIDE [Concomitant]
     Active Substance: METOCLOPRAMIDE
     Indication: Nausea
     Dosage: METHOCLOPRAMIDE (PA) ADMINISTERED 10 MG IV PER CDDP+GEMCITABINE+DURVALUMAB PROTOCOL (SCHEME 1-8 Q21)
     Route: 042
     Dates: start: 20230801, end: 20231016
  8. RIOPAN [Concomitant]
     Indication: Gastrooesophageal reflux disease
     Dosage: RIOPAN*OS SUSP 40BS 80MG/ML10ML- 2 BS/DAY
     Dates: start: 2023
  9. GLUTATIONE [Concomitant]
     Indication: Chemotherapy side effect prophylaxis
     Dosage: GLUTATHIONE (PA) ADMINISTERED 2.5 MG IV PER CDDP+GEMCITABINE+DURVALUMAB PROTOCOL (SCHEME 1-8 Q21)
     Route: 042
     Dates: start: 20230801, end: 20231016
  10. GLUTATIONE [Concomitant]
     Indication: Antioxidant therapy
  11. CREON [Concomitant]
     Active Substance: PANCRELIPASE AMYLASE\PANCRELIPASE LIPASE\PANCRELIPASE PROTEASE
     Indication: Pancreatic failure
     Dosage: 2 DOSAGE FORMS DAILY; CREON 10000UI*100CPS 150MG RM - 2 CPS/DAY
     Dates: start: 2023
  12. OMEPRAZOLE [Concomitant]
     Active Substance: OMEPRAZOLE
     Indication: Gastrooesophageal reflux disease
     Dosage: 20 MILLIGRAM DAILY; OMEPRAZEN*28CPS 20MG: OMEPRAZOLE - 1 CPS/DAY
     Dates: start: 2023
  13. MICARDIS [Concomitant]
     Active Substance: TELMISARTAN
     Indication: Hypertension
     Dosage: 20 MILLIGRAM DAILY; MICARDIS*28CPR 20MG - 1 TABLET / DAY
     Dates: start: 2023
  14. DEXAMETHASONE [Concomitant]
     Active Substance: DEXAMETHASONE
     Indication: Steroid therapy
     Dosage: DEXAMETASONE (PA) ADMINISTERED 8 MG IV PER CDDP+GEMCITABINE+DURVALUMAB PROTOCOL (SCHEDULE 1-8 Q21)
     Route: 042
     Dates: start: 20230801, end: 20231016
  15. DEXAMETHASONE [Concomitant]
     Active Substance: DEXAMETHASONE
     Indication: Chemotherapy side effect prophylaxis

REACTIONS (6)
  - Hypotensive crisis [Not Recovered/Not Resolved]
  - Oral herpes [Recovering/Resolving]
  - Dyspnoea [Not Recovered/Not Resolved]
  - Fatigue [Not Recovered/Not Resolved]
  - Chest pain [Not Recovered/Not Resolved]
  - Suffocation feeling [Not Recovered/Not Resolved]

NARRATIVE: CASE EVENT DATE: 20231009
